FAERS Safety Report 7056600-6 (Version None)
Quarter: 2010Q4

REPORT INFORMATION
  Report Type: 
  Country: None (occurrence: None)
  Receive Date: 20101021
  Receipt Date: 20101014
  Transmission Date: 20110411
  Serious: Yes (Disabling, Other)
  Sender: FDA-Public Use
  Company Number: US-MERCK-1006USA02447

PATIENT
  Age: 71 Year
  Sex: Female

DRUGS (2)
  1. FOSAMAX [Suspect]
     Indication: OSTEOPOROSIS
     Route: 048
     Dates: start: 20060101, end: 20081201
  2. FOSAMAX [Suspect]
     Route: 048
     Dates: start: 19991201

REACTIONS (22)
  - ADVERSE EVENT [None]
  - ARTHRITIS [None]
  - BONE DENSITY DECREASED [None]
  - BONE DISORDER [None]
  - DEVICE FAILURE [None]
  - DRUG HYPERSENSITIVITY [None]
  - DYSGEUSIA [None]
  - EDENTULOUS [None]
  - GINGIVAL BLEEDING [None]
  - GLAUCOMA [None]
  - HYPERSENSITIVITY [None]
  - IMPAIRED HEALING [None]
  - INFLAMMATION [None]
  - LOOSE TOOTH [None]
  - PAIN [None]
  - PERIODONTAL DISEASE [None]
  - PERIODONTITIS [None]
  - RADIUS FRACTURE [None]
  - TOOTH DISORDER [None]
  - TOOTH FRACTURE [None]
  - TOOTH LOSS [None]
  - ULNA FRACTURE [None]
